FAERS Safety Report 13681183 (Version 4)
Quarter: 2017Q4

REPORT INFORMATION
  Report Type: Spontaneous
  Country: GB (occurrence: GB)
  Receive Date: 20170623
  Receipt Date: 20171013
  Transmission Date: 20180320
  Serious: Yes (Other)
  Sender: FDA-Public Use
  Company Number: PHFR2017GB004538

PATIENT
  Sex: Female

DRUGS (2)
  1. ABILIFY [Concomitant]
     Active Substance: ARIPIPRAZOLE
     Indication: PRODUCT USED FOR UNKNOWN INDICATION
     Dosage: STRENGTH: 5 MG,15 IN TABLET OR 8.7MG BY INJECTION
     Route: 065
  2. PROPRANOLOL [Suspect]
     Active Substance: PROPRANOLOL HYDROCHLORIDE
     Indication: CHEST DISCOMFORT
     Dosage: ONE 10MG IN THE MORNING AND ONE AT LUNCH AND ONE 40MG 3 TIMES A DAY
     Route: 065

REACTIONS (1)
  - Blood potassium decreased [Unknown]
